FAERS Safety Report 16315022 (Version 1)
Quarter: 2019Q2

REPORT INFORMATION
  Report Type: Spontaneous
  Country: US (occurrence: US)
  Receive Date: 20190515
  Receipt Date: 20190515
  Transmission Date: 20190711
  Serious: Yes (Other)
  Sender: FDA-Public Use
  Company Number: US-PFIZER INC-2019200120

PATIENT
  Age: 58 Year
  Sex: Female
  Weight: 106.59 kg

DRUGS (2)
  1. LYRICA [Suspect]
     Active Substance: PREGABALIN
     Indication: FIBROMYALGIA
     Dosage: 200 MG, 3X/DAY
  2. LYRICA [Suspect]
     Active Substance: PREGABALIN
     Indication: BACK PAIN

REACTIONS (5)
  - Addison^s disease [Unknown]
  - Cataract [Unknown]
  - Procedural pain [Unknown]
  - Sciatica [Unknown]
  - Post procedural complication [Unknown]

NARRATIVE: CASE EVENT DATE: 201710
